FAERS Safety Report 18381330 (Version 1)
Quarter: 2020Q4

REPORT INFORMATION
  Report Type: Spontaneous
  Country: US (occurrence: US)
  Receive Date: 20201014
  Receipt Date: 20201014
  Transmission Date: 20210114
  Serious: Yes (Hospitalization, Other)
  Sender: FDA-Public Use
  Company Number: US-MYLANLABS-2020M1086090

PATIENT
  Sex: Male

DRUGS (1)
  1. TRAMADOL. [Suspect]
     Active Substance: TRAMADOL
     Indication: PRODUCT USED FOR UNKNOWN INDICATION
     Dosage: UNK

REACTIONS (14)
  - Neuropathic arthropathy [Unknown]
  - Diabetic neuropathy [Unknown]
  - Osteomyelitis [Unknown]
  - Hypertension [Unknown]
  - Infection [Unknown]
  - Drug abuse [Unknown]
  - Gastritis [Unknown]
  - Hepatitis [Unknown]
  - Dependence [Unknown]
  - Depression [Unknown]
  - Anxiety [Unknown]
  - Diabetic ketoacidosis [Unknown]
  - Ulcer [Unknown]
  - Renal disorder [Unknown]
